FAERS Safety Report 6581028-2 (Version None)
Quarter: 2010Q1

REPORT INFORMATION
  Report Type: 
  Country: None (occurrence: None)
  Receive Date: 20100215
  Receipt Date: 20100201
  Transmission Date: 20100710
  Serious: Yes (Hospitalization)
  Sender: FDA-Public Use
  Company Number: US-ELI_LILLY_AND_COMPANY-US200911005846

PATIENT
  Sex: Male

DRUGS (11)
  1. FORTEO [Suspect]
     Indication: OSTEOPOROSIS
     Dosage: 20 UG, DAILY (1/D)
     Dates: start: 20090812
  2. HYDROCHLORZIDE [Concomitant]
     Dosage: 25 MG, DAILY (1/D)
  3. SYNTHROID [Concomitant]
     Dosage: 0.075 MG, DAILY (1/D)
  4. UROXATRAL [Concomitant]
     Dosage: 10 MG, DAILY (1/D)
  5. WARFARIN [Concomitant]
     Dosage: 7.5 MG, DAILY (1/D)
  6. AVODART [Concomitant]
     Dosage: 0.5 MG, DAILY (1/D)
  7. PRAVASTATIN [Concomitant]
     Dosage: 40 MG, DAILY (1/D)
  8. QUINAPRIL [Concomitant]
     Dosage: 40 MG, DAILY (1/D)
  9. ATENOLOL [Concomitant]
     Dosage: 100 MG, 2/D
  10. GLUCOPHAGE [Concomitant]
     Dosage: 1000 MG, 2/D
  11. LYRICA [Concomitant]
     Dosage: 75 MG, 4/D
     Dates: start: 20090101

REACTIONS (2)
  - INTERVERTEBRAL DISC DEGENERATION [None]
  - INTERVERTEBRAL DISC DISORDER [None]
